FAERS Safety Report 18748913 (Version 1)
Quarter: 2021Q1

REPORT INFORMATION
  Report Type: Spontaneous
  Country: US (occurrence: US)
  Receive Date: 20210115
  Receipt Date: 20210115
  Transmission Date: 20210419
  Serious: No
  Sender: FDA-Public Use
  Company Number: US-ROCHE-2373602

PATIENT
  Age: 77 Year
  Sex: Male
  Weight: 70.37 kg

DRUGS (3)
  1. RITUXAN [Suspect]
     Active Substance: RITUXIMAB
     Dosage: ONGOING :NO
     Route: 042
     Dates: start: 20190418, end: 20190418
  2. RITUXAN [Suspect]
     Active Substance: RITUXIMAB
     Indication: LYMPHOMA
     Dosage: WEEKLY FOR 4 DOSES
     Route: 042
     Dates: start: 20190411
  3. RITUXAN [Suspect]
     Active Substance: RITUXIMAB
     Dosage: ONGOING :NO
     Route: 042
     Dates: start: 20190509, end: 20190509

REACTIONS (3)
  - Pruritus [Recovered/Resolved]
  - Rash erythematous [Recovered/Resolved]
  - Urticaria [Recovered/Resolved]

NARRATIVE: CASE EVENT DATE: 20190411
